FAERS Safety Report 6188513-6 (Version None)
Quarter: 2009Q2

REPORT INFORMATION
  Report Type: 
  Country: None (occurrence: None)
  Receive Date: 20090513
  Receipt Date: 20080219
  Transmission Date: 20091009
  Serious: No
  Sender: FDA-Public Use
  Company Number: GB-ALEXION-A200800023

PATIENT

DRUGS (2)
  1. SOLIRIS [Suspect]
     Indication: PAROXYSMAL NOCTURNAL HAEMOGLOBINURIA
     Dosage: 900 MG, SINGLE
     Route: 042
     Dates: start: 20080218, end: 20080218
  2. UNSPECIFIED INDIGESTION TABLET [Concomitant]
     Indication: DYSPEPSIA
     Route: 048

REACTIONS (2)
  - COUGH [None]
  - INFUSION RELATED REACTION [None]
